FAERS Safety Report 14903623 (Version 4)
Quarter: 2018Q4

REPORT INFORMATION
  Report Type: Spontaneous
  Country: DE (occurrence: DE)
  Receive Date: 20180516
  Receipt Date: 20181008
  Transmission Date: 20190204
  Serious: Yes (Hospitalization)
  Sender: FDA-Public Use
  Company Number: DE-ELI_LILLY_AND_COMPANY-DE201805003978

PATIENT
  Age: 41 Year
  Sex: Male
  Weight: 147.5 kg

DRUGS (4)
  1. TOUJEO [Concomitant]
     Active Substance: INSULIN GLARGINE
     Indication: PRODUCT USED FOR UNKNOWN INDICATION
     Dosage: 16 IU, WEEKLY (1/W)
     Dates: start: 2013
  2. JARDIANCE [Suspect]
     Active Substance: EMPAGLIFLOZIN
     Indication: TYPE 2 DIABETES MELLITUS
     Dosage: 10 MG, DAILY
     Route: 048
     Dates: start: 20180301, end: 20180327
  3. INSULIN GLARGINE [Concomitant]
     Active Substance: INSULIN GLARGINE
     Indication: PRODUCT USED FOR UNKNOWN INDICATION
     Dosage: 16 DF, DAILY
     Route: 065
     Dates: end: 20180327
  4. TRULICITY [Suspect]
     Active Substance: DULAGLUTIDE
     Indication: TYPE 2 DIABETES MELLITUS
     Dosage: .75 MG, DAILY
     Route: 058
     Dates: start: 20180301, end: 20180327

REACTIONS (9)
  - Dyspnoea [Unknown]
  - Tachycardia [Unknown]
  - Hypokalaemia [Unknown]
  - Vomiting [Unknown]
  - General physical health deterioration [Recovering/Resolving]
  - Abdominal pain upper [Unknown]
  - Hyperglycaemia [Unknown]
  - Ketoacidosis [Recovered/Resolved]
  - Abdominal rigidity [Unknown]

NARRATIVE: CASE EVENT DATE: 20180327
